FAERS Safety Report 18538493 (Version 1)
Quarter: 2020Q4

REPORT INFORMATION
  Report Type: Spontaneous
  Country: CN (occurrence: CN)
  Receive Date: 20201123
  Receipt Date: 20201123
  Transmission Date: 20210114
  Serious: Yes (Hospitalization)
  Sender: FDA-Public Use
  Company Number: CN-ROCHE-2718221

PATIENT
  Age: 43 Year
  Sex: Female

DRUGS (2)
  1. XELODA [Suspect]
     Active Substance: CAPECITABINE
     Indication: COLON CANCER
     Dosage: IN THE MORNING
     Route: 048
     Dates: start: 20200926, end: 20201016
  2. XELODA [Suspect]
     Active Substance: CAPECITABINE
     Dosage: IN THE EVENING
     Route: 048
     Dates: start: 20200926, end: 20201016

REACTIONS (2)
  - Hepatic function abnormal [Recovering/Resolving]
  - Hepatic enzyme increased [Recovering/Resolving]

NARRATIVE: CASE EVENT DATE: 20201016
